FAERS Safety Report 20649610 (Version 1)
Quarter: 2022Q1

REPORT INFORMATION
  Report Type: Spontaneous
  Country: US (occurrence: None)
  Receive Date: 20220329
  Receipt Date: 20220329
  Transmission Date: 20220423
  Serious: Yes (Hospitalization)
  Sender: FDA-Public Use
  Company Number: None

PATIENT
  Age: 50 Year
  Sex: Female

DRUGS (2)
  1. ZARXIO [Suspect]
     Active Substance: FILGRASTIM-SNDZ
     Indication: Cervix carcinoma
     Dosage: OTHER QUANTITY : 480 MCG/0.8ML;?OTHER FREQUENCY : EVERY 24 HOURS;?OTHER ROUTE : INJECTION;INJECT 480
     Route: 050
  2. ZARXIO [Suspect]
     Active Substance: FILGRASTIM-SNDZ
     Dosage: OTHER FREQUENCY : EVERY 24 HOURS;?
     Route: 058

REACTIONS (6)
  - Thrombosis [None]
  - Bacteraemia [None]
  - Urinary tract infection [None]
  - Myocarditis [None]
  - Sleep apnoea syndrome [None]
  - Deep vein thrombosis [None]

NARRATIVE: CASE EVENT DATE: 20220323
